FAERS Safety Report 11662863 (Version 1)
Quarter: 2015Q4

REPORT INFORMATION
  Report Type: Spontaneous
  Country: US (occurrence: US)
  Receive Date: 20151027
  Receipt Date: 20151027
  Transmission Date: 20160304
  Serious: No
  Sender: FDA-Public Use
  Company Number: US-MEDA-2014020151

PATIENT
  Sex: Male

DRUGS (2)
  1. PROAIR HFA [Concomitant]
     Active Substance: ALBUTEROL SULFATE
     Indication: ASTHMA
  2. DYMISTA [Suspect]
     Active Substance: AZELASTINE HYDROCHLORIDE\FLUTICASONE PROPIONATE
     Indication: WHEEZING
     Dates: start: 20140217, end: 20140217

REACTIONS (9)
  - Nasal congestion [Recovered/Resolved]
  - Dyspnoea [Unknown]
  - Inappropriate schedule of drug administration [Recovered/Resolved]
  - Eye irritation [Not Recovered/Not Resolved]
  - Self-medication [Recovered/Resolved]
  - Anosmia [Not Recovered/Not Resolved]
  - Eye swelling [Not Recovered/Not Resolved]
  - Product use issue [Recovered/Resolved]
  - Wrong technique in product usage process [Recovered/Resolved]

NARRATIVE: CASE EVENT DATE: 20140217
